FAERS Safety Report 6038424-1 (Version None)
Quarter: 2009Q1

REPORT INFORMATION
  Report Type: 
  Country: None (occurrence: None)
  Receive Date: 20090113
  Receipt Date: 20090113
  Transmission Date: 20090719
  Serious: Yes (Hospitalization)
  Sender: FDA-Public Use
  Company Number: None

PATIENT
  Age: 51 Year
  Sex: Male

DRUGS (2)
  1. PROMETHAZINE [Suspect]
     Dosage: 25 MG PRN RECTAL
     Route: 054
     Dates: start: 20081226, end: 20081229
  2. PROCHLORPERAZINE [Suspect]
     Dosage: 10 MG PRN PO
     Route: 048
     Dates: start: 20081226, end: 20081229

REACTIONS (5)
  - ALANINE AMINOTRANSFERASE INCREASED [None]
  - ASPARTATE AMINOTRANSFERASE INCREASED [None]
  - BLOOD BILIRUBIN INCREASED [None]
  - JAUNDICE [None]
  - LETHARGY [None]
